FAERS Safety Report 7575599-7 (Version None)
Quarter: 2011Q2

REPORT INFORMATION
  Report Type: 
  Country: None (occurrence: None)
  Receive Date: 20110627
  Receipt Date: 20110616
  Transmission Date: 20111010
  Serious: Yes (Hospitalization)
  Sender: FDA-Public Use
  Company Number: JP-UCBSA-031990

PATIENT
  Sex: Female

DRUGS (19)
  1. PRANLUKAST [Suspect]
     Indication: INTERSTITIAL LUNG DISEASE
     Route: 048
     Dates: start: 20110405, end: 20110415
  2. CANDESARTAN CILEXETIL [Suspect]
     Indication: HYPERTENSION
     Route: 048
  3. CERTOLIZUMAB PEGOL [Suspect]
     Dosage: UNKNOWN
     Dates: start: 20090709, end: 20091028
  4. CALCITRIOL [Concomitant]
     Dates: end: 20110512
  5. ACETAMINOPHEN [Concomitant]
     Dosage: 3 TABS/DAY
     Dates: start: 20110405, end: 20110415
  6. ACETAMINOPHEN [Concomitant]
     Dosage: 3 TABS/DAY
     Dates: start: 20110423, end: 20110423
  7. LOXONIN [Suspect]
     Indication: LUMBAR SPINAL STENOSIS
     Route: 048
     Dates: start: 20090611, end: 20110512
  8. MANIDIPINE HYDROCHLORIDE [Concomitant]
     Dates: end: 20110424
  9. MOXIFLOXACIN HYDROCHLORIDE [Concomitant]
     Dates: start: 20110423, end: 20110423
  10. PRANLUKAST [Suspect]
     Route: 048
     Dates: start: 20110423, end: 20110423
  11. LOXONIN [Suspect]
     Indication: RHEUMATOID ARTHRITIS
     Route: 048
     Dates: start: 20090611, end: 20110512
  12. BANAN [Suspect]
     Indication: INTERSTITIAL LUNG DISEASE
     Route: 048
     Dates: start: 20110405, end: 20110407
  13. CERTOLIZUMAB PEGOL [Suspect]
     Indication: RHEUMATOID ARTHRITIS
     Route: 058
     Dates: start: 20091112, end: 20110331
  14. LOCHOLEST [Suspect]
     Indication: HYPERCHOLESTEROLAEMIA
     Route: 048
     Dates: end: 20110512
  15. FEXOFENADINE HCL [Concomitant]
     Dates: start: 20100528, end: 20110512
  16. SODIUM AZULENE SULFONATE_L-GLUTAMINE [Concomitant]
     Dosage: 2 GM DAILY
     Dates: start: 20100722
  17. RIMATIL [Suspect]
     Indication: RHEUMATOID ARTHRITIS
     Route: 048
     Dates: start: 20090918, end: 20110512
  18. MARZULENE-S [Suspect]
     Indication: GASTRITIS PROPHYLAXIS
     Route: 048
     Dates: start: 20100722, end: 20110512
  19. MOXIFLOXACIN HYDROCHLORIDE [Concomitant]
     Dates: start: 20110408, end: 20110415

REACTIONS (1)
  - INTERSTITIAL LUNG DISEASE [None]
